FAERS Safety Report 9267410 (Version 2)
Quarter: 2013Q2

REPORT INFORMATION
  Report Type: Spontaneous
  Country: TW (occurrence: TW)
  Receive Date: 20130502
  Receipt Date: 20130502
  Transmission Date: 20140414
  Serious: Yes (Other)
  Sender: FDA-Public Use
  Company Number: TW-JNJFOC-20130408498

PATIENT
  Age: 56 Year
  Sex: Male

DRUGS (2)
  1. ROGAINE FOR MEN EXTRA STRENGTH FOAM [Suspect]
     Route: 061
  2. ROGAINE FOR MEN EXTRA STRENGTH FOAM [Suspect]
     Indication: PRODUCT USED FOR UNKNOWN INDICATION
     Route: 061

REACTIONS (4)
  - Capillary fragility [Recovering/Resolving]
  - Conjunctival hyperaemia [Recovering/Resolving]
  - Product formulation issue [Unknown]
  - Accidental exposure to product [Unknown]
